FAERS Safety Report 23075071 (Version 1)
Quarter: 2023Q4

REPORT INFORMATION
  Report Type: Report from Study
  Country: US (occurrence: US)
  Receive Date: 20231017
  Receipt Date: 20231017
  Transmission Date: 20240110
  Serious: Yes (Other)
  Sender: FDA-Public Use
  Company Number: US-ABBVIE-5446512

PATIENT
  Sex: Male

DRUGS (1)
  1. SKYRIZI [Suspect]
     Active Substance: RISANKIZUMAB-RZAA
     Indication: Psoriasis
     Route: 058

REACTIONS (6)
  - Blindness [Unknown]
  - Arthralgia [Unknown]
  - COVID-19 [Unknown]
  - Knee operation [Unknown]
  - Vision blurred [Unknown]
  - Eye operation [Unknown]

NARRATIVE: CASE EVENT DATE: 20210101
